FAERS Safety Report 21529700 (Version 2)
Quarter: 2022Q4

REPORT INFORMATION
  Report Type: Spontaneous
  Country: JP (occurrence: JP)
  Receive Date: 20221031
  Receipt Date: 20221213
  Transmission Date: 20230113
  Serious: Yes (Hospitalization, Other)
  Sender: FDA-Public Use
  Company Number: JP-ONO-2022JP029199

PATIENT
  Age: 7 Decade
  Sex: Female

DRUGS (2)
  1. OPDIVO [Suspect]
     Active Substance: NIVOLUMAB
     Indication: Metastatic renal cell carcinoma
     Route: 041
  2. YERVOY [Suspect]
     Active Substance: IPILIMUMAB
     Indication: Metastatic renal cell carcinoma
     Route: 041

REACTIONS (6)
  - Platelet count decreased [Unknown]
  - Febrile neutropenia [Unknown]
  - Immune-mediated enterocolitis [Recovering/Resolving]
  - Immune-mediated encephalitis [Recovering/Resolving]
  - Blood pressure decreased [Unknown]
  - Vasculitis [Unknown]
